FAERS Safety Report 22225909 (Version 1)
Quarter: 2023Q2

REPORT INFORMATION
  Report Type: Spontaneous
  Country: US (occurrence: US)
  Receive Date: 20230419
  Receipt Date: 20230419
  Transmission Date: 20230721
  Serious: No
  Sender: FDA-Public Use
  Company Number: US-JNJFOC-20230418535

PATIENT
  Age: 44 Year
  Sex: Female

DRUGS (2)
  1. SPRAVATO [Suspect]
     Active Substance: ESKETAMINE
     Indication: Major depression
     Route: 065
     Dates: start: 20221213
  2. SPRAVATO [Suspect]
     Active Substance: ESKETAMINE
     Route: 065

REACTIONS (5)
  - Sedation [Unknown]
  - Migraine [Unknown]
  - Night sweats [Unknown]
  - Irritability [Unknown]
  - Withdrawal syndrome [Unknown]

NARRATIVE: CASE EVENT DATE: 20230405
